FAERS Safety Report 8789187 (Version 1)
Quarter: 2012Q4

REPORT INFORMATION
  Report Type: Spontaneous
  Country: US (occurrence: None)
  Receive Date: 20120907
  Receipt Date: 20120907
  Transmission Date: 20130627
  Serious: Yes (Life-Threatening)
  Sender: FDA-Public Use
  Company Number: None

PATIENT
  Age: 61 Year
  Sex: Male
  Weight: 76.2 kg

DRUGS (2)
  1. INTELENCE [Suspect]
     Indication: AIDS
     Route: 048
     Dates: start: 20120106, end: 20120905
  2. INTELENCE [Suspect]
     Indication: HIV DISEASE
     Route: 048
     Dates: start: 20120106, end: 20120905

REACTIONS (3)
  - Foreign body [None]
  - Throat irritation [None]
  - Product solubility abnormal [None]
